FAERS Safety Report 23441472 (Version 3)
Quarter: 2024Q1

REPORT INFORMATION
  Report Type: Other
  Country: PT (occurrence: PT)
  Receive Date: 20240125
  Receipt Date: 20240212
  Transmission Date: 20240410
  Serious: Yes (Hospitalization)
  Sender: FDA-Public Use
  Company Number: PT-CELLTRION HEALTHCARE HUNGARY KFT-2024PT000877

PATIENT
  Age: 73 Year
  Sex: Male

DRUGS (30)
  1. RITUXIMAB [Suspect]
     Active Substance: RITUXIMAB
     Indication: Diffuse large B-cell lymphoma stage IV
     Dosage: FIFTH CYCLE
     Route: 042
     Dates: start: 202101
  2. RITUXIMAB [Suspect]
     Active Substance: RITUXIMAB
     Dosage: SECOND CYCLE
     Route: 042
  3. RITUXIMAB [Suspect]
     Active Substance: RITUXIMAB
     Dosage: THIRD CYCLE
     Route: 042
     Dates: start: 202103
  4. RITUXIMAB [Suspect]
     Active Substance: RITUXIMAB
     Dosage: FOURTH CYCLE
     Route: 042
     Dates: start: 202104
  5. RITUXIMAB [Suspect]
     Active Substance: RITUXIMAB
     Dosage: FIFTH CYCLE
     Route: 042
  6. RITUXIMAB [Suspect]
     Active Substance: RITUXIMAB
     Dosage: SIXTH CYCLE
     Route: 042
  7. DOXORUBICIN [Suspect]
     Active Substance: DOXORUBICIN
     Indication: Diffuse large B-cell lymphoma stage IV
     Dosage: FIRST CYCLE
     Route: 065
     Dates: start: 202101
  8. DOXORUBICIN [Suspect]
     Active Substance: DOXORUBICIN
     Dosage: SECOND CYCLE
     Route: 065
  9. DOXORUBICIN [Suspect]
     Active Substance: DOXORUBICIN
     Dosage: THIRD CYCLE
     Route: 065
     Dates: start: 202103
  10. DOXORUBICIN [Suspect]
     Active Substance: DOXORUBICIN
     Dosage: FOURTH CYCLE
     Route: 065
     Dates: start: 202104
  11. DOXORUBICIN [Suspect]
     Active Substance: DOXORUBICIN
     Dosage: FIFTH CYCLE
     Route: 065
  12. DOXORUBICIN [Suspect]
     Active Substance: DOXORUBICIN
     Dosage: SIXTH CYCLE
     Route: 065
  13. VINCRISTINE [Suspect]
     Active Substance: VINCRISTINE
     Indication: Diffuse large B-cell lymphoma stage IV
     Dosage: FIRST CYCLE
     Route: 065
     Dates: start: 202101
  14. VINCRISTINE [Suspect]
     Active Substance: VINCRISTINE
     Dosage: SECOND CYCLE
     Route: 065
  15. VINCRISTINE [Suspect]
     Active Substance: VINCRISTINE
     Dosage: THIRD CYCLE
     Route: 065
     Dates: start: 202103
  16. VINCRISTINE [Suspect]
     Active Substance: VINCRISTINE
     Dosage: FOURTH CYCLE
     Route: 065
     Dates: start: 202104
  17. VINCRISTINE [Suspect]
     Active Substance: VINCRISTINE
     Dosage: FIFTH CYCLE
     Route: 065
  18. VINCRISTINE [Suspect]
     Active Substance: VINCRISTINE
     Dosage: SIXTH CYCLE
     Route: 065
  19. PREDNISONE [Suspect]
     Active Substance: PREDNISONE
     Indication: Diffuse large B-cell lymphoma stage IV
     Dosage: FIRST CYCLE
     Route: 065
     Dates: start: 202101
  20. PREDNISONE [Suspect]
     Active Substance: PREDNISONE
     Dosage: SECOND CYCLE
     Route: 065
  21. PREDNISONE [Suspect]
     Active Substance: PREDNISONE
     Dosage: THIRD CYCLE
     Route: 065
     Dates: start: 202103
  22. PREDNISONE [Suspect]
     Active Substance: PREDNISONE
     Dosage: FOURTH CYCLE
     Route: 065
     Dates: start: 202104
  23. PREDNISONE [Suspect]
     Active Substance: PREDNISONE
     Dosage: FIFTH CYCLE
     Route: 065
  24. PREDNISONE [Suspect]
     Active Substance: PREDNISONE
     Dosage: SIXTH CYCLE
     Route: 065
  25. CYCLOPHOSPHAMIDE [Suspect]
     Active Substance: CYCLOPHOSPHAMIDE
     Indication: Diffuse large B-cell lymphoma stage IV
     Dosage: FIRST CYCLE
     Route: 065
     Dates: start: 202101
  26. CYCLOPHOSPHAMIDE [Suspect]
     Active Substance: CYCLOPHOSPHAMIDE
     Dosage: SECOND CYCLE
     Route: 065
  27. CYCLOPHOSPHAMIDE [Suspect]
     Active Substance: CYCLOPHOSPHAMIDE
     Dosage: THIRD CYCLE
     Route: 065
     Dates: start: 202103
  28. CYCLOPHOSPHAMIDE [Suspect]
     Active Substance: CYCLOPHOSPHAMIDE
     Dosage: FOURTH CYCLE
     Route: 065
     Dates: start: 202104
  29. CYCLOPHOSPHAMIDE [Suspect]
     Active Substance: CYCLOPHOSPHAMIDE
     Dosage: FIFTH CYCLE
     Route: 065
  30. CYCLOPHOSPHAMIDE [Suspect]
     Active Substance: CYCLOPHOSPHAMIDE
     Dosage: SIXTH CYCLE
     Route: 065

REACTIONS (6)
  - COVID-19 [Recovered/Resolved]
  - Neutropenia [Recovered/Resolved]
  - Pancytopenia [Recovered/Resolved]
  - Leukopenia [Recovered/Resolved]
  - Respiratory failure [Recovered/Resolved]
  - COVID-19 [Recovered/Resolved]

NARRATIVE: CASE EVENT DATE: 20210101
